FAERS Safety Report 6819950-1 (Version None)
Quarter: 2010Q3

REPORT INFORMATION
  Report Type: 
  Country: None (occurrence: None)
  Receive Date: 20100707
  Receipt Date: 20100630
  Transmission Date: 20110219
  Serious: Yes (Hospitalization)
  Sender: FDA-Public Use
  Company Number: DE-ROCHE-709323

PATIENT
  Sex: Female
  Weight: 64 kg

DRUGS (15)
  1. BEVACIZUMAB [Suspect]
     Indication: NON-SMALL CELL LUNG CANCER
     Dosage: FORM: IV. DATE OF LAST DOSE PRIOR TO SAE: 14 MAY 2010.
     Route: 042
     Dates: start: 20100514, end: 20100604
  2. PEMETREXED [Suspect]
     Indication: NON-SMALL CELL LUNG CANCER
     Dosage: FORM: IV. DATE OF LAST DOSE PRIOR TO SAE: 14 MAY 2010. FREQUENCY D1.
     Route: 042
     Dates: start: 20100514, end: 20100604
  3. DURAGESIC-100 [Concomitant]
     Dosage: DUROGESIC PATCH 12.5UG/H.
  4. MCP DROPS [Concomitant]
     Dosage: TDD: 36DX4D.
  5. VIANI [Concomitant]
     Dosage: TDD: 1 DFX 2D.
  6. NOVALGIN [Concomitant]
     Dosage: TDD:40DX4D
  7. PANTOZOL [Concomitant]
     Dosage: TDD: 1 DFX1/D.
  8. METOPROLOL [Concomitant]
     Dosage: TDD: 1DFX2/D.
  9. LORAZEPAM [Concomitant]
     Dosage: TDD: 1 DFX2D.
  10. FORTECORTIN [Concomitant]
     Dosage: TDD:1DFX3D
  11. AMLODIN [Concomitant]
  12. LAXOBERAL [Concomitant]
     Dosage: TDD:15DX3/D.
  13. HYDROCHLOROTHIAZIDE [Concomitant]
  14. MAGNESIUM [Concomitant]
  15. ONDANSETRON [Concomitant]
     Dosage: FREQUENCY AS NECASSARY

REACTIONS (3)
  - MUCOSAL INFLAMMATION [None]
  - NAUSEA [None]
  - VOMITING [None]
